FAERS Safety Report 18004583 (Version 2)
Quarter: 2025Q4

REPORT INFORMATION
  Report Type: Spontaneous
  Country: EU (occurrence: EU)
  Receive Date: 20200710
  Receipt Date: 20251127
  Transmission Date: 20260117
  Serious: Yes (Death, Hospitalization, Other)
  Sender: AUROBINDO
  Company Number: EU-SZ09-PHHY2014ES151540

PATIENT
  Age: 63 Year
  Sex: Male

DRUGS (6)
  1. VORICONAZOLE [Suspect]
     Active Substance: VORICONAZOLE
     Indication: Product used for unknown indication
     Dosage: UNK
     Route: 065
  2. VORICONAZOLE [Suspect]
     Active Substance: VORICONAZOLE
     Indication: Antifungal treatment
  3. ANIDULAFUNGIN [Suspect]
     Active Substance: ANIDULAFUNGIN
     Indication: Product used for unknown indication
     Dosage: UNK
  4. ANIDULAFUNGIN [Suspect]
     Active Substance: ANIDULAFUNGIN
     Indication: Antifungal treatment
  5. MICOFENOLATO DE MOFETILA  fgh [Concomitant]
     Indication: Immunosuppression
     Dosage: UNK
     Route: 065
  6. TACROLIMUS jn [Concomitant]
     Indication: Immunosuppression
     Dosage: UNK
     Route: 065

REACTIONS (4)
  - Hepatotoxicity [Fatal]
  - Hepatic function abnormal [Fatal]
  - Biliary obstruction [Unknown]
  - Pyrexia [Unknown]
